FAERS Safety Report 16847303 (Version 3)
Quarter: 2019Q4

REPORT INFORMATION
  Report Type: Report from Study
  Country: US (occurrence: US)
  Receive Date: 20190924
  Receipt Date: 20191029
  Transmission Date: 20200122
  Serious: Yes (Hospitalization)
  Sender: FDA-Public Use
  Company Number: US-ACTELION-A-NJ2019-195965

PATIENT
  Sex: Female
  Weight: 64.85 kg

DRUGS (4)
  1. UPTRAVI [Suspect]
     Active Substance: SELEXIPAG
     Dosage: 400 MCG, BID
     Route: 048
  2. UPTRAVI [Suspect]
     Active Substance: SELEXIPAG
     Indication: PULMONARY ARTERIAL HYPERTENSION
     Dosage: 200 MCG, BID
     Route: 048
     Dates: end: 20190919
  3. UPTRAVI [Suspect]
     Active Substance: SELEXIPAG
     Dosage: UNK
     Route: 048
  4. ADEMPAS [Concomitant]
     Active Substance: RIOCIGUAT

REACTIONS (11)
  - Swelling [Unknown]
  - Dyspnoea [Unknown]
  - Hypotension [Unknown]
  - Fall [Unknown]
  - Somnolence [Unknown]
  - Pain [Unknown]
  - Weight decreased [Unknown]
  - Flushing [Unknown]
  - Pyrexia [Unknown]
  - Chills [Unknown]
  - Chest pain [Unknown]
